FAERS Safety Report 12694977 (Version 2)
Quarter: 2016Q3

REPORT INFORMATION
  Report Type: Spontaneous
  Country: FR (occurrence: FR)
  Receive Date: 20160829
  Receipt Date: 20160905
  Transmission Date: 20161109
  Serious: Yes (Other)
  Sender: FDA-Public Use
  Company Number: FR-AMGEN-FRASP2016110837

PATIENT
  Age: 88 Year
  Sex: Male

DRUGS (1)
  1. ARANESP [Suspect]
     Active Substance: DARBEPOETIN ALFA
     Indication: RENAL FAILURE
     Dosage: 300 MUG, UNK
     Route: 065

REACTIONS (10)
  - Renal failure [Unknown]
  - Overdose [Unknown]
  - Fatigue [Unknown]
  - Tension [Unknown]
  - Hypertension [Not Recovered/Not Resolved]
  - Anaemia [Unknown]
  - Fall [Unknown]
  - Dizziness [Unknown]
  - Cardiac operation [Unknown]
  - Aortic surgery [Unknown]

NARRATIVE: CASE EVENT DATE: 201604
